FAERS Safety Report 9697631 (Version 1)
Quarter: 2013Q4

REPORT INFORMATION
  Report Type: Spontaneous
  Country: US (occurrence: US)
  Receive Date: 20131120
  Receipt Date: 20131120
  Transmission Date: 20140711
  Serious: No
  Sender: FDA-Public Use
  Company Number: US-PFIZER INC-2013325816

PATIENT
  Age: 82 Year
  Sex: Male

DRUGS (2)
  1. VIAGRA [Suspect]
     Indication: CONSTIPATION
     Dosage: 15 MG, UNK
  2. VIAGRA [Suspect]
     Indication: SEXUAL DYSFUNCTION
     Dosage: 25 MG, UNK

REACTIONS (2)
  - Off label use [Unknown]
  - Therapeutic response unexpected [Unknown]
